FAERS Safety Report 8160873-6 (Version None)
Quarter: 2012Q1

REPORT INFORMATION
  Report Type: 
  Country: None (occurrence: None)
  Receive Date: 20120223
  Receipt Date: 20120221
  Transmission Date: 20120608
  Serious: Yes (Death, Hospitalization, Other)
  Sender: FDA-Public Use
  Company Number: PHHY2012DE014790

PATIENT
  Sex: Male
  Weight: 84 kg

DRUGS (4)
  1. ZOMETA [Suspect]
     Indication: BONE DISORDER
     Dosage: 4 MG, EVERY 4 WEEKS
     Route: 042
     Dates: start: 20110927
  2. DOCETAXEL [Concomitant]
     Dosage: UNK
     Dates: start: 20110913
  3. DOCETAXEL [Concomitant]
     Dosage: 150 MG
     Dates: start: 20111011, end: 20111011
  4. ZOMETA [Suspect]
     Dosage: 4 MG, EVERY 4 WEEKS
     Route: 042
     Dates: start: 20111101

REACTIONS (2)
  - PROSTATE CANCER [None]
  - GENERAL PHYSICAL HEALTH DETERIORATION [None]
